FAERS Safety Report 14591757 (Version 1)
Quarter: 2018Q1

REPORT INFORMATION
  Report Type: Spontaneous
  Country: US (occurrence: US)
  Receive Date: 20180302
  Receipt Date: 20180302
  Transmission Date: 20180509
  Serious: No
  Sender: FDA-Public Use
  Company Number: US-NOVOPROD-547392

PATIENT
  Age: 60 Year
  Sex: Female

DRUGS (3)
  1. VICTOZA [Suspect]
     Active Substance: LIRAGLUTIDE
     Indication: TYPE 2 DIABETES MELLITUS
     Dosage: 1.2 MG
     Route: 058
     Dates: start: 201705, end: 20170522
  2. VICTOZA [Suspect]
     Active Substance: LIRAGLUTIDE
     Dosage: UNK
     Route: 058
     Dates: start: 2017
  3. CIPRO [Suspect]
     Active Substance: CIPROFLOXACIN HYDROCHLORIDE
     Indication: PRODUCT USED FOR UNKNOWN INDICATION
     Dosage: UNK
     Route: 048

REACTIONS (7)
  - Omphalitis [Unknown]
  - Abdominal pain [Recovered/Resolved]
  - Diarrhoea [Recovered/Resolved]
  - Weight decreased [Unknown]
  - Vomiting [Recovered/Resolved]
  - Blood glucose increased [Unknown]
  - Abdominal pain [Recovered/Resolved]

NARRATIVE: CASE EVENT DATE: 2017
